FAERS Safety Report 7027227-7 (Version None)
Quarter: 2010Q3

REPORT INFORMATION
  Report Type: 
  Country: None (occurrence: None)
  Receive Date: 20100930
  Receipt Date: 20100914
  Transmission Date: 20110219
  Serious: Yes (Hospitalization, Disabling)
  Sender: FDA-Public Use
  Company Number: 2010003717

PATIENT
  Age: 54 Year
  Sex: Female

DRUGS (6)
  1. TARCEVA [Suspect]
     Indication: BRONCHIAL CARCINOMA
     Dosage: 150 MG, QD, ORAL
     Route: 048
     Dates: start: 20071001
  2. PANTOPRAZOLE SODIUM [Concomitant]
  3. CITALOPRAM HYDROBROMIDE [Concomitant]
  4. METHIMAZOLE [Concomitant]
  5. NOVALGIN (METAMAZOLE SODIUM) [Concomitant]
  6. AREDIA [Concomitant]

REACTIONS (20)
  - ADENOMA BENIGN [None]
  - BLOOD MAGNESIUM [None]
  - BRONCHIAL CARCINOMA [None]
  - COMPUTERISED TOMOGRAM [None]
  - DEPRESSION [None]
  - DISABILITY [None]
  - FACIAL PARESIS [None]
  - GASTRITIS [None]
  - HYPERTHYROIDISM [None]
  - LUMBAR PUNCTURE [None]
  - MALIGNANT NEOPLASM PROGRESSION [None]
  - METASTASES TO BONE [None]
  - METASTASES TO LUNG [None]
  - METASTASES TO MENINGES [None]
  - MUSCLE ATROPHY [None]
  - MUSCLE SPASMS [None]
  - NUCLEAR MAGNETIC RESONANCE IMAGING [None]
  - PAIN [None]
  - PARESIS [None]
  - TRISMUS [None]
